FAERS Safety Report 14271849 (Version 6)
Quarter: 2018Q2

REPORT INFORMATION
  Report Type: Spontaneous
  Country: ES (occurrence: ES)
  Receive Date: 20171211
  Receipt Date: 20180420
  Transmission Date: 20180711
  Serious: Yes (Disabling, Other)
  Sender: FDA-Public Use
  Company Number: ES-GILEAD-2017-0308997

PATIENT
  Age: 49 Year
  Sex: Male
  Weight: 70 kg

DRUGS (14)
  1. SOVALDI [Suspect]
     Active Substance: SOFOSBUVIR
     Indication: CHRONIC HEPATITIS C
     Dosage: UNK UNKNOWN, UNK
     Route: 065
  2. SOVALDI [Suspect]
     Active Substance: SOFOSBUVIR
     Indication: HIV INFECTION
  3. SIMEPREVIR [Suspect]
     Active Substance: SIMEPREVIR
     Indication: HIV INFECTION
  4. ABACAVIR. [Concomitant]
     Active Substance: ABACAVIR
     Indication: HIV INFECTION
     Dosage: UNK UNKNOWN, UNK
     Route: 065
  5. RIBAVIRIN. [Suspect]
     Active Substance: RIBAVIRIN
     Indication: HIV INFECTION
  6. ETRAVIRINE [Concomitant]
     Active Substance: ETRAVIRINE
     Indication: HIV INFECTION
     Dosage: UNK UNKNOWN, UNK
     Route: 065
  7. RALTEGRAVIR. [Concomitant]
     Active Substance: RALTEGRAVIR
     Indication: HIV INFECTION
     Dosage: UNK UNKNOWN, UNK
     Route: 065
  8. LAMIVUDINE. [Concomitant]
     Active Substance: LAMIVUDINE
     Indication: HIV INFECTION
     Dosage: UNK UNKNOWN, UNK
     Route: 065
  9. RIBAVIRIN. [Suspect]
     Active Substance: RIBAVIRIN
     Indication: CHRONIC HEPATITIS C
     Dosage: 1000 MG, QD
     Route: 048
     Dates: start: 20150505, end: 20150727
  10. SIMEPREVIR [Suspect]
     Active Substance: SIMEPREVIR
     Indication: CHRONIC HEPATITIS C
     Dosage: UNK UNKNOWN, UNK
     Route: 065
  11. ETRAVIRINE [Concomitant]
     Active Substance: ETRAVIRINE
     Dosage: DOSAGE FORM: UNSPECIFIED
     Route: 065
  12. LEDIPASVIR/SOFOSBUVIR [Concomitant]
     Active Substance: LEDIPASVIR\SOFOSBUVIR
     Indication: CHRONIC HEPATITIS C
     Dosage: UNK UNKNOWN, UNK
     Route: 065
  13. PREDNISONE. [Suspect]
     Active Substance: PREDNISONE
     Indication: CHOROIDITIS
     Dosage: 1 MG/KG, UNK
     Route: 065
  14. ABACAVIR. [Concomitant]
     Active Substance: ABACAVIR
     Dosage: DOSAGE FORM: UNSPECIFIED
     Route: 065

REACTIONS (5)
  - Choroiditis [Recovered/Resolved]
  - Drug ineffective [Unknown]
  - Disease progression [Recovered/Resolved]
  - Visual acuity reduced [Recovering/Resolving]
  - Hepatitis C [Recovered/Resolved]

NARRATIVE: CASE EVENT DATE: 20150701
